FAERS Safety Report 9753191 (Version 1)
Quarter: 2013Q4

REPORT INFORMATION
  Report Type: Spontaneous
  Country: US (occurrence: US)
  Receive Date: 20131213
  Receipt Date: 20131213
  Transmission Date: 20140711
  Serious: No
  Sender: FDA-Public Use
  Company Number: US-GILEAD-2010-0027221

PATIENT
  Sex: Female
  Weight: 68.95 kg

DRUGS (10)
  1. LETAIRIS [Suspect]
     Indication: PULMONARY ARTERIAL HYPERTENSION
     Route: 048
     Dates: start: 20090710
  2. SUCRALFATE [Concomitant]
  3. PENTOXIFYLLINE [Concomitant]
  4. EVISTA [Concomitant]
  5. PREDNISONE [Concomitant]
  6. SIMVASTATIN [Concomitant]
  7. HCTZ [Concomitant]
  8. ATACAND [Concomitant]
  9. NEXIUM [Concomitant]
  10. ASPIRIN [Concomitant]

REACTIONS (2)
  - Ear pain [Unknown]
  - Nasal congestion [Unknown]
